FAERS Safety Report 14137076 (Version 1)
Quarter: 2017Q4

REPORT INFORMATION
  Report Type: Spontaneous
  Country: AU (occurrence: AU)
  Receive Date: 20171027
  Receipt Date: 20171027
  Transmission Date: 20180321
  Serious: Yes (Hospitalization, Other)
  Sender: FDA-Public Use
  Company Number: AU-GILEAD-2017-0300057

PATIENT
  Age: 44 Year
  Sex: Male
  Weight: 78 kg

DRUGS (8)
  1. GABAPENTIN. [Concomitant]
     Active Substance: GABAPENTIN
  2. TEMAZEPAM. [Concomitant]
     Active Substance: TEMAZEPAM
  3. DAKLINZA [Suspect]
     Active Substance: DACLATASVIR
     Indication: CHRONIC HEPATITIS C
     Dosage: 60 MG, UNK
     Route: 048
     Dates: start: 20160819
  4. ESOMEPRAZOLE [Concomitant]
     Active Substance: ESOMEPRAZOLE
  5. SOVALDI [Suspect]
     Active Substance: SOFOSBUVIR
     Indication: CHRONIC HEPATITIS C
     Dosage: 400 MG, UNK
     Route: 048
     Dates: start: 20160819
  6. TRAMADOL. [Concomitant]
     Active Substance: TRAMADOL
  7. METHADONE [Concomitant]
     Active Substance: METHADONE HYDROCHLORIDE
  8. ESCITALOPRAM [Concomitant]
     Active Substance: ESCITALOPRAM OXALATE

REACTIONS (3)
  - Hepatic encephalopathy [Recovered/Resolved]
  - Constipation [Recovered/Resolved]
  - Conjunctivitis viral [Recovered/Resolved]

NARRATIVE: CASE EVENT DATE: 201610
